FAERS Safety Report 8763785 (Version 2)
Quarter: 2012Q4

REPORT INFORMATION
  Report Type: 
  Country: TR (occurrence: TR)
  Receive Date: 20120831
  Receipt Date: 20120913
  Transmission Date: 20130627
  Serious: Yes (Other)
  Sender: FDA-Public Use
  Company Number: TR-RANBAXY-2012RR-59449

PATIENT
  Age: 4 Year
  Sex: Male

DRUGS (2)
  1. FLUOXETINE [Concomitant]
     Indication: OBSESSIVE-COMPULSIVE DISORDER
     Dosage: 5 mg/day
     Route: 065
  2. FLUOXETINE [Suspect]
     Indication: OBSESSIVE-COMPULSIVE DISORDER
     Dosage: 20 mg/day
     Route: 065

REACTIONS (2)
  - Abnormal behaviour [Recovered/Resolved]
  - Off label use [Unknown]
